FAERS Safety Report 6973097-2 (Version None)
Quarter: 2010Q3

REPORT INFORMATION
  Report Type: 
  Country: None (occurrence: None)
  Receive Date: 20100909
  Receipt Date: 20100901
  Transmission Date: 20110219
  Serious: Yes (Other)
  Sender: FDA-Public Use
  Company Number: US-BRISTOL-MYERS SQUIBB COMPANY-15262538

PATIENT
  Age: 63 Year
  Sex: Female

DRUGS (11)
  1. WARFARIN SODIUM [Suspect]
     Dosage: 2.5 MG 4DAYS A WK AND 2 TABS FOR REMAINING 3DAYS OF A WK.
     Route: 048
  2. ALLOPURINOL [Concomitant]
  3. VITAMIN B-12 [Concomitant]
  4. TOLTERODINE [Concomitant]
  5. HYDROCHLOROTHIAZIDE [Concomitant]
  6. LOSARTAN POTASSIUM [Concomitant]
  7. AMLODIPINE [Concomitant]
  8. OMEPRAZOLE [Concomitant]
  9. CLOPIDOGREL BISULFATE [Concomitant]
  10. METOPROLOL TARTRATE [Concomitant]
  11. SIMVASTATIN [Concomitant]

REACTIONS (3)
  - BLOOD PARATHYROID HORMONE INCREASED [None]
  - CALCIPHYLAXIS [None]
  - CELLULITIS [None]
